FAERS Safety Report 21231818 (Version 1)
Quarter: 2022Q3

REPORT INFORMATION
  Report Type: Spontaneous
  Country: PT (occurrence: PT)
  Receive Date: 20220819
  Receipt Date: 20220819
  Transmission Date: 20221026
  Serious: Yes (Life-Threatening)
  Sender: FDA-Public Use
  Company Number: None

PATIENT
  Age: 21 Year
  Sex: Female

DRUGS (5)
  1. PANTOPRAZOLE [Suspect]
     Active Substance: PANTOPRAZOLE
     Indication: Abdominal pain upper
     Dosage: THERAPY END DATE : NASK ,ADDITIONAL INFORMATION :EPIGASTRIC PAIN
     Route: 065
     Dates: start: 20210930
  2. ALBUTEROL [Concomitant]
     Active Substance: ALBUTEROL
     Indication: Product used for unknown indication
     Dosage: OF 8/8 HOURS FOR 5 DAYS IF YOU HAVE ASTHMA AND BEFORE EXERCISE  ,SALBUTAMOL NOVOLIZER, UNIT DOSE :
  3. EPIPEN [Concomitant]
     Active Substance: EPINEPHRINE
     Indication: Product used for unknown indication
     Dosage: SOS, FREQUENCY TIME : 1 AS REQUIRED
  4. CETIRIZINE HYDROCHLORIDE [Concomitant]
     Active Substance: CETIRIZINE HYDROCHLORIDE
     Indication: Product used for unknown indication
     Dosage: SOS, UNIT DOSE : 10 MG,  FREQUENCY TIME : 1 AS REQUIRED
  5. FLUTICASONE PROPIONATE [Concomitant]
     Active Substance: FLUTICASONE PROPIONATE
     Indication: Product used for unknown indication
     Dosage: 1 TO 2 INHALATIONS IN SOS

REACTIONS (4)
  - Dizziness [Recovered/Resolved]
  - Presyncope [Recovered/Resolved]
  - Rash [Recovered/Resolved]
  - Abdominal pain [Recovered/Resolved]

NARRATIVE: CASE EVENT DATE: 20210930
